FAERS Safety Report 5509423-0 (Version None)
Quarter: 2007Q4

REPORT INFORMATION
  Report Type: 
  Country: None (occurrence: None)
  Receive Date: 20071107
  Receipt Date: 20071026
  Transmission Date: 20080405
  Serious: Yes (Other)
  Sender: FDA-Public Use
  Company Number: FR-PFIZER INC-2007090972

PATIENT
  Sex: Female

DRUGS (2)
  1. TRIFLUCAN [Suspect]
     Route: 048
     Dates: start: 20070803, end: 20070807
  2. VFEND [Suspect]
     Route: 048
     Dates: start: 20070725, end: 20070801

REACTIONS (1)
  - CYTOLYTIC HEPATITIS [None]
